FAERS Safety Report 7267485-7 (Version None)
Quarter: 2011Q1

REPORT INFORMATION
  Report Type: 
  Country: None (occurrence: None)
  Receive Date: 20110119
  Receipt Date: 20100115
  Transmission Date: 20110831
  Serious: Yes (Hospitalization)
  Sender: FDA-Public Use
  Company Number: DSA_42478_2010

PATIENT
  Age: 60 Year
  Sex: Female

DRUGS (4)
  1. LISINOPRIL HYDROCHLOROTHIAZID [Concomitant]
  2. CALTRATE + D /00944201/ [Concomitant]
  3. TAHOR [Concomitant]
  4. DILTIAZEM HYDROCHLORIDE [Suspect]
     Indication: HYPERTENSION
     Dosage: (10 DOSAGE FORM: 300 MG AT ONE TIME ORAL) ; (DF ORAL)
     Route: 048

REACTIONS (3)
  - INCORRECT DOSE ADMINISTERED [None]
  - SUICIDE ATTEMPT [None]
  - VERTIGO POSITIONAL [None]
